FAERS Safety Report 4809229-1 (Version None)
Quarter: 2005Q4

REPORT INFORMATION
  Report Type: 
  Country: None (occurrence: None)
  Receive Date: 20051021
  Receipt Date: 20051012
  Transmission Date: 20060501
  Serious: Yes (Death)
  Sender: FDA-Public Use
  Company Number: 05H-150-0303169-00

PATIENT
  Sex: 0

DRUGS (1)
  1. HALOTHANE [Suspect]

REACTIONS (1)
  - HEPATOCELLULAR DAMAGE [None]
